FAERS Safety Report 18915792 (Version 1)
Quarter: 2021Q1

REPORT INFORMATION
  Report Type: Report from Study
  Country: US (occurrence: US)
  Receive Date: 20210219
  Receipt Date: 20210219
  Transmission Date: 20210420
  Serious: Yes (Hospitalization)
  Sender: FDA-Public Use
  Company Number: US-TEVA-2021-US-1881360

PATIENT
  Age: 57 Year
  Sex: Female
  Weight: 113.53 kg

DRUGS (33)
  1. CARBOPLATIN. [Suspect]
     Active Substance: CARBOPLATIN
     Dosage: AUC 5; DAY 1 OF FOUR 21?DAY CYCLES DURING CHEMOTHERAPY SEGMENT 1
     Route: 042
     Dates: start: 20140428, end: 20140428
  2. PACLITAXEL. [Suspect]
     Active Substance: PACLITAXEL
     Indication: TRIPLE NEGATIVE BREAST CANCER
     Dosage: DAY 1 OF 12 WEEKLY CYCLES DURING CHEMOTHERAPY SEGMENT 1 (80 MG/M2)
     Route: 042
     Dates: start: 20140404, end: 20140725
  3. ACETAMINOPHEN. [Concomitant]
     Active Substance: ACETAMINOPHEN
     Indication: PREMEDICATION
     Dosage: (650 MG,AS REQUIRED)
     Route: 048
     Dates: start: 20140403
  4. ZOFRAN [Concomitant]
     Active Substance: ONDANSETRON HYDROCHLORIDE
     Indication: VOMITING
  5. ZANTAC [Concomitant]
     Active Substance: RANITIDINE HYDROCHLORIDE
     Indication: PREMEDICATION
     Dosage: (150 MG,2 IN 1 D)
     Route: 048
     Dates: start: 20140402
  6. AMBIEN [Concomitant]
     Active Substance: ZOLPIDEM TARTRATE
     Indication: INSOMNIA
     Dosage: (10 MG,AS REQUIRED)
     Route: 048
     Dates: start: 20140428
  7. LOPERAMIDE [Concomitant]
     Active Substance: LOPERAMIDE
     Indication: DIARRHOEA
     Dosage: 1?2 (TABLET,AS REQUIRED)
     Route: 048
     Dates: start: 20140411
  8. DEXAMETHASONE. [Concomitant]
     Active Substance: DEXAMETHASONE
     Route: 042
     Dates: start: 20140814
  9. DOXORUBICIN [Suspect]
     Active Substance: DOXORUBICIN
     Indication: TRIPLE NEGATIVE BREAST CANCER
     Dosage: DAY 1 OF FOUR 21?DAY CYCLES DURING CHEMOTHERAPY SEGMENT 2 (60 MG/M2,1 IN 14 D)
     Route: 042
     Dates: start: 20140814, end: 20140814
  10. VALIUM [Concomitant]
     Active Substance: DIAZEPAM
     Indication: PREMEDICATION
     Route: 048
     Dates: start: 20140304
  11. FERROUS SULFATE. [Concomitant]
     Active Substance: FERROUS SULFATE
     Indication: MINERAL SUPPLEMENTATION
     Dosage: (142 MG,1 IN 1 D)
     Route: 048
     Dates: start: 20140515
  12. DOXORUBICIN [Suspect]
     Active Substance: DOXORUBICIN
     Dosage: DAY 1 OF FOUR 21?DAY CYCLES DURING CHEMOTHERAPY SEGMENT 2 (50 MG/M2)
     Route: 042
     Dates: start: 20140904
  13. LOPRESSOR [Concomitant]
     Active Substance: METOPROLOL TARTRATE
     Indication: SUPRAVENTRICULAR EXTRASYSTOLES
  14. ALOXI [Concomitant]
     Active Substance: PALONOSETRON HYDROCHLORIDE
     Indication: PREMEDICATION
     Dosage: DAY 1 (0.25 MG)
     Route: 042
     Dates: start: 20140814
  15. XANAX [Concomitant]
     Active Substance: ALPRAZOLAM
     Indication: ANXIETY
     Dosage: (0.5 MG,AS REQUIRED)
     Route: 048
     Dates: start: 2009
  16. CALTRATE [Concomitant]
     Active Substance: CALCIUM CARBONATE
     Indication: MINERAL SUPPLEMENTATION
     Dosage: (1500 MG,1 IN 1 D)
     Route: 048
     Dates: start: 20140404
  17. VITAMIN D3 [Concomitant]
     Active Substance: CHOLECALCIFEROL
     Indication: VITAMIN SUPPLEMENTATION
     Dosage: (800 IU,1 IN 1 D)
     Route: 048
     Dates: start: 20140404
  18. LOPRESSOR [Concomitant]
     Active Substance: METOPROLOL TARTRATE
     Indication: VENTRICULAR EXTRASYSTOLES
     Dosage: H.S. AND PRN (25 MG)
     Route: 048
     Dates: start: 20140609
  19. PEPCID [Concomitant]
     Active Substance: FAMOTIDINE
     Indication: PREMEDICATION
     Route: 042
     Dates: start: 20140814
  20. TOPROL XL [Concomitant]
     Active Substance: METOPROLOL SUCCINATE
     Indication: PALPITATIONS
     Dosage: (25 MG,AS REQUIRED)
     Route: 048
     Dates: start: 20140609
  21. DEXAMETHASONE. [Concomitant]
     Active Substance: DEXAMETHASONE
     Indication: PREMEDICATION
     Dosage: 20 MG, AS REQUIRED
     Route: 042
     Dates: start: 20140403, end: 20140725
  22. CYCLOPHOSPHAMIDE. [Suspect]
     Active Substance: CYCLOPHOSPHAMIDE
     Indication: TRIPLE NEGATIVE BREAST CANCER
     Dosage: DAY 1 OF FOUR 21?DAY CYCLES DURING CHEMOTHERAPY SEGMENT 2 (600 MG/M2,1 IN 14 D)
     Route: 042
     Dates: start: 20140813, end: 20140813
  23. EMEND [Concomitant]
     Active Substance: APREPITANT
     Indication: PREMEDICATION
     Route: 042
     Dates: start: 20140814
  24. CARBOPLATIN. [Suspect]
     Active Substance: CARBOPLATIN
     Indication: TRIPLE NEGATIVE BREAST CANCER
     Dosage: AUC 6; DAY 1 OF FOUR 21?DAY CYCLES DURING CHEMOTHERAPY SEGMENT 1
     Route: 042
     Dates: start: 20140404, end: 20140404
  25. CARBOPLATIN. [Suspect]
     Active Substance: CARBOPLATIN
     Dosage: AUC 4; DAY 1 OF FOUR 21?DAY CYCLES DURING CHEMOTHERAPY SEGMENT 1
     Route: 042
     Dates: start: 20140530, end: 20140530
  26. CYCLOPHOSPHAMIDE. [Suspect]
     Active Substance: CYCLOPHOSPHAMIDE
     Dosage: DAY 1 OF FOUR 21?DAY CYCLES DURING CHEMOTHERAPY SEGMENT 2 (500 MG/M2,1 IN 14)
     Route: 042
     Dates: start: 20140904
  27. LORAZEPAM. [Concomitant]
     Active Substance: LORAZEPAM
     Indication: NAUSEA
     Dosage: (1 MG,AS REQUIRED)
     Route: 048
     Dates: start: 20140404
  28. NEULASTA [Concomitant]
     Active Substance: PEGFILGRASTIM
     Indication: NEUTROPENIA
     Dosage: DAY 2 (6 MG)
     Route: 058
     Dates: start: 20140815
  29. ZOFRAN [Concomitant]
     Active Substance: ONDANSETRON HYDROCHLORIDE
     Indication: NAUSEA
     Dosage: (8 MG,AS REQUIRED)
     Route: 048
     Dates: start: 20140402
  30. PHENERGAN [Concomitant]
     Active Substance: PROMETHAZINE HYDROCHLORIDE
     Indication: NAUSEA
     Dosage: (25 MG,AS REQUIRED)
     Route: 048
     Dates: start: 20140402
  31. VITAMIN B12 [Concomitant]
     Active Substance: CYANOCOBALAMIN
     Indication: VITAMIN SUPPLEMENTATION
     Dosage: 1000 MCG (1000 MCG,1 IN 1 D)
     Route: 048
     Dates: start: 20140404
  32. MIRALAX [Concomitant]
     Active Substance: POLYETHYLENE GLYCOL 3350
     Indication: CONSTIPATION
     Dosage: 1 TABLESPOON (AS REQUIRED)
     Dates: start: 20140901
  33. IBUPROFEN. [Concomitant]
     Active Substance: IBUPROFEN
     Indication: HEADACHE
     Route: 048
     Dates: start: 20140403

REACTIONS (1)
  - Febrile neutropenia [Recovered/Resolved]

NARRATIVE: CASE EVENT DATE: 20140912
